FAERS Safety Report 9644310 (Version 14)
Quarter: 2014Q2

REPORT INFORMATION
  Report Type: Spontaneous
  Country: CA (occurrence: CA)
  Receive Date: 20131025
  Receipt Date: 20140611
  Transmission Date: 20141212
  Serious: Yes (Other)
  Sender: FDA-Public Use
  Company Number: CA-ROCHE-1291992

PATIENT
  Age: 17 Year
  Sex: Male

DRUGS (21)
  1. XOLAIR [Suspect]
     Indication: ASTHMA
     Route: 058
     Dates: start: 20120904
  2. XOLAIR [Suspect]
     Route: 058
     Dates: start: 20130326
  3. XOLAIR [Suspect]
     Route: 058
     Dates: start: 20130716
  4. XOLAIR [Suspect]
     Route: 058
     Dates: start: 20130909
  5. XOLAIR [Suspect]
     Route: 058
     Dates: start: 20130930
  6. XOLAIR [Suspect]
     Route: 058
     Dates: start: 20131017
  7. XOLAIR [Suspect]
     Route: 058
     Dates: start: 20131104
  8. XOLAIR [Suspect]
     Route: 058
     Dates: start: 20131119
  9. XOLAIR [Suspect]
     Route: 058
     Dates: start: 20131203
  10. XOLAIR [Suspect]
     Route: 058
     Dates: start: 20131231
  11. XOLAIR [Suspect]
     Route: 058
     Dates: start: 20140116
  12. XOLAIR [Suspect]
     Route: 058
     Dates: start: 20140128
  13. XOLAIR [Suspect]
     Route: 058
     Dates: start: 20140211
  14. XOLAIR [Suspect]
     Route: 058
     Dates: start: 20140311
  15. XOLAIR [Suspect]
     Route: 058
     Dates: start: 20140325
  16. XOLAIR [Suspect]
     Route: 058
     Dates: start: 20140422
  17. XOLAIR [Suspect]
     Route: 058
     Dates: start: 20140506
  18. PREDNISONE [Concomitant]
  19. SYMBICORT [Concomitant]
  20. PULMICORT [Concomitant]
  21. ZENHALE [Concomitant]

REACTIONS (3)
  - Blood pressure increased [Not Recovered/Not Resolved]
  - Heart rate decreased [Recovered/Resolved]
  - Drug ineffective [Unknown]
